FAERS Safety Report 13824377 (Version 1)
Quarter: 2017Q3

REPORT INFORMATION
  Report Type: Spontaneous
  Country: GB (occurrence: GB)
  Receive Date: 20170802
  Receipt Date: 20170802
  Transmission Date: 20171127
  Serious: Yes (Hospitalization)
  Sender: FDA-Public Use
  Company Number: GB-ASTRAZENECA-2017SE77943

PATIENT
  Sex: Female

DRUGS (1)
  1. LYNPARZA [Suspect]
     Active Substance: OLAPARIB
     Dosage: 400 MG
     Route: 048
     Dates: start: 20170711

REACTIONS (3)
  - Neuropathy peripheral [Unknown]
  - Mean cell volume increased [Unknown]
  - Obstruction [Unknown]

NARRATIVE: CASE EVENT DATE: 20170711
